FAERS Safety Report 9955871 (Version 2)
Quarter: 2014Q1

REPORT INFORMATION
  Report Type: Report from Study
  Country: US (occurrence: US)
  Receive Date: 20140304
  Receipt Date: 20140304
  Transmission Date: 20141002
  Serious: No
  Sender: FDA-Public Use
  Company Number: US-ABBVIE-13P-163-1061144-00

PATIENT
  Sex: Male
  Weight: 81.72 kg

DRUGS (9)
  1. HUMIRA [Suspect]
     Indication: PSORIASIS
     Dates: start: 2007, end: 201302
  2. HUMIRA [Suspect]
     Indication: PSORIATIC ARTHROPATHY
  3. ENALAPRIL [Concomitant]
     Indication: HYPERTENSION
  4. VERAPAMIL [Concomitant]
     Indication: HYPERTENSION
  5. CLOBETASOL [Concomitant]
     Indication: PSORIASIS
  6. AMMONIUM [Concomitant]
     Indication: PRODUCT USED FOR UNKNOWN INDICATION
  7. FLUNISOLIDE [Concomitant]
     Indication: PRODUCT USED FOR UNKNOWN INDICATION
     Dosage: SPRAY
  8. HALOBETASOL PROP [Concomitant]
     Indication: PRODUCT USED FOR UNKNOWN INDICATION
  9. LIPITOR [Concomitant]
     Indication: PRODUCT USED FOR UNKNOWN INDICATION

REACTIONS (3)
  - Psoriatic arthropathy [Not Recovered/Not Resolved]
  - Drug ineffective [Not Recovered/Not Resolved]
  - Psoriasis [Recovering/Resolving]
